FAERS Safety Report 11727346 (Version 7)
Quarter: 2021Q2

REPORT INFORMATION
  Report Type: Spontaneous
  Country: US (occurrence: US)
  Receive Date: 20151112
  Receipt Date: 20210614
  Transmission Date: 20210716
  Serious: No
  Sender: FDA-Public Use
  Company Number: US-PFIZER INC-2015374312

PATIENT
  Age: 60 Year
  Sex: Female
  Weight: 63.5 kg

DRUGS (3)
  1. LYRICA [Suspect]
     Active Substance: PREGABALIN
     Indication: ARTHRITIS
     Dosage: 1 CAPSULE BY ORAL ROUTE 2 TIMES EVERY DAY
     Route: 048
  2. LYRICA [Suspect]
     Active Substance: PREGABALIN
     Indication: BACK PAIN
  3. LYRICA [Suspect]
     Active Substance: PREGABALIN
     Indication: FIBROMYALGIA
     Dosage: 75 MG, 2X/DAY
     Route: 048

REACTIONS (6)
  - Fall [Unknown]
  - Pain [Not Recovered/Not Resolved]
  - Dyslexia [Unknown]
  - Scoliosis [Unknown]
  - Condition aggravated [Unknown]
  - Memory impairment [Unknown]
